FAERS Safety Report 8153143-3 (Version None)
Quarter: 2012Q1

REPORT INFORMATION
  Report Type: 
  Country: None (occurrence: None)
  Receive Date: 20120221
  Receipt Date: 20120213
  Transmission Date: 20120608
  Serious: Yes (Hospitalization, Other)
  Sender: FDA-Public Use
  Company Number: FR-VERTEX PHARMACEUTICALS INC.-000000000000000125

PATIENT
  Age: 48 Year
  Sex: Male

DRUGS (3)
  1. PEGINTERFERON ALFA-2B [Concomitant]
     Indication: HEPATITIS C
  2. INCIVO (TELAPREVIR) [Suspect]
     Indication: HEPATITIS C
     Dosage: DOSAGE FORM: TABLET
     Route: 048
     Dates: start: 20111013, end: 20120102
  3. RIBAVIRIN [Concomitant]
     Indication: HEPATITIS C

REACTIONS (3)
  - OEDEMA [None]
  - RASH GENERALISED [None]
  - DRUG RASH WITH EOSINOPHILIA AND SYSTEMIC SYMPTOMS [None]
